FAERS Safety Report 14561217 (Version 2)
Quarter: 2018Q2

REPORT INFORMATION
  Report Type: Spontaneous
  Country: US (occurrence: US)
  Receive Date: 20180222
  Receipt Date: 20180425
  Transmission Date: 20180711
  Serious: No
  Sender: FDA-Public Use
  Company Number: US-PFIZER INC-2018074286

PATIENT
  Age: 18 Year
  Sex: Female
  Weight: 93.8 kg

DRUGS (1)
  1. PROVERA [Suspect]
     Active Substance: MEDROXYPROGESTERONE ACETATE
     Indication: MENSTRUAL DISORDER
     Dosage: 10 MG, DAILY (1 IN 1 D)
     Route: 048
     Dates: end: 201611

REACTIONS (1)
  - Metrorrhagia [Unknown]
